FAERS Safety Report 11487858 (Version 1)
Quarter: 2015Q3

REPORT INFORMATION
  Report Type: Report from Study
  Country: IN (occurrence: IN)
  Receive Date: 20150909
  Receipt Date: 20150909
  Transmission Date: 20151125
  Serious: Yes (Death)
  Sender: FDA-Public Use
  Company Number: IN-PFIZER INC-2015298011

PATIENT

DRUGS (3)
  1. DOXYCYCLINE MONOHYDRATE [Suspect]
     Active Substance: DOXYCYCLINE
     Indication: SCRUB TYPHUS
     Dosage: 200 MG, 2X/DAY
  2. CHLORAMPHENICOL [Suspect]
     Active Substance: CHLORAMPHENICOL
     Indication: SCRUB TYPHUS
     Dosage: UNK
     Route: 042
  3. AZITHROMYCIN [Suspect]
     Active Substance: AZITHROMYCIN ANHYDROUS
     Indication: SCRUB TYPHUS
     Dosage: 500 MG, 1X/DAY

REACTIONS (1)
  - Drug ineffective [Fatal]
